FAERS Safety Report 10886077 (Version 1)
Quarter: 2015Q1

REPORT INFORMATION
  Report Type: Spontaneous
  Country: NL (occurrence: NL)
  Receive Date: 20150304
  Receipt Date: 20150304
  Transmission Date: 20150721
  Serious: Yes (Other)
  Sender: FDA-Public Use
  Company Number: NL-ELI_LILLY_AND_COMPANY-NL201502009126

PATIENT
  Sex: Female

DRUGS (1)
  1. ZYPREXA [Suspect]
     Active Substance: OLANZAPINE
     Indication: DELUSION
     Dosage: 1, D/F
     Dates: start: 200606

REACTIONS (2)
  - Abortion spontaneous [Not Recovered/Not Resolved]
  - Exposure during pregnancy [Unknown]
